FAERS Safety Report 17969738 (Version 1)
Quarter: 2020Q3

REPORT INFORMATION
  Report Type: Spontaneous
  Country: BR (occurrence: BR)
  Receive Date: 20200701
  Receipt Date: 20200701
  Transmission Date: 20201103
  Serious: Yes (Other)
  Sender: FDA-Public Use
  Company Number: NVSC2020BR182550

PATIENT
  Age: 13 Year
  Sex: Female

DRUGS (2)
  1. CYCLOPHOSPHAMIDE. [Suspect]
     Active Substance: CYCLOPHOSPHAMIDE
     Indication: EWING^S SARCOMA METASTATIC
     Dosage: UNK (6 CYCLES)
     Route: 065
  2. TOPOTECAN [Suspect]
     Active Substance: TOPOTECAN HYDROCHLORIDE
     Indication: EWING^S SARCOMA METASTATIC
     Dosage: UNK (6 CYCLES)
     Route: 065

REACTIONS (1)
  - Tumour necrosis [Unknown]
